FAERS Safety Report 23772534 (Version 1)
Quarter: 2024Q2

REPORT INFORMATION
  Report Type: Report from Study
  Country: JP (occurrence: JP)
  Receive Date: 20240423
  Receipt Date: 20240423
  Transmission Date: 20240716
  Serious: Yes (Other)
  Sender: FDA-Public Use
  Company Number: JP-JT-EVA201803511GILEAD-001

PATIENT
  Age: 51 Year
  Sex: Male

DRUGS (5)
  1. EMTRICITABINE\TENOFOVIR DISOPROXIL FUMARATE [Suspect]
     Active Substance: EMTRICITABINE\TENOFOVIR DISOPROXIL FUMARATE
     Indication: HIV infection
     Dosage: 1 DF, QD
     Route: 048
     Dates: start: 20140427, end: 20170503
  2. ISENTRESS [Suspect]
     Active Substance: RALTEGRAVIR POTASSIUM
     Indication: HIV infection
     Dosage: 800 MG, QD
     Route: 048
     Dates: start: 20100604, end: 20160812
  3. MARAVIROC [Suspect]
     Active Substance: MARAVIROC
     Indication: HIV infection
     Dosage: 300 MG, QD
     Route: 048
     Dates: start: 20111125, end: 20160812
  4. CRESTOR [Suspect]
     Active Substance: ROSUVASTATIN CALCIUM
     Indication: Product used for unknown indication
     Dosage: UNK
     Route: 048
     Dates: start: 20170119, end: 20170317
  5. TIVICAY [Concomitant]
     Active Substance: DOLUTEGRAVIR SODIUM
     Indication: HIV infection
     Dosage: 50 MG, QD
     Route: 048
     Dates: start: 20160813, end: 20171117

REACTIONS (4)
  - Drug-induced liver injury [Recovered/Resolved]
  - Hypertriglyceridaemia [Recovering/Resolving]
  - Hepatic steatosis [Not Recovered/Not Resolved]
  - Spinal osteoarthritis [Recovering/Resolving]

NARRATIVE: CASE EVENT DATE: 20140611
